FAERS Safety Report 10813701 (Version 1)
Quarter: 2015Q1

REPORT INFORMATION
  Report Type: Spontaneous
  Country: US (occurrence: US)
  Receive Date: 20150218
  Receipt Date: 20150218
  Transmission Date: 20150721
  Serious: No
  Sender: FDA-Public Use
  Company Number: US-009507513-1502USA007570

PATIENT
  Sex: Female

DRUGS (2)
  1. DILTIAZEM HYDROCHLORIDE. [Concomitant]
     Active Substance: DILTIAZEM HYDROCHLORIDE
     Dosage: UNK
     Route: 048
  2. VYTORIN [Suspect]
     Active Substance: EZETIMIBE\SIMVASTATIN
     Dosage: 10/80MG, UNK
     Route: 048

REACTIONS (1)
  - Myalgia [Unknown]
